FAERS Safety Report 11493656 (Version 1)
Quarter: 2015Q3

REPORT INFORMATION
  Report Type: Spontaneous
  Country: IT (occurrence: IT)
  Receive Date: 20150911
  Receipt Date: 20150911
  Transmission Date: 20151125
  Serious: Yes (Disabling)
  Sender: FDA-Public Use
  Company Number: IT-HOSPIRA-2997216

PATIENT
  Age: 77 Year
  Sex: Male

DRUGS (1)
  1. ZOLEDRONIC ACID [Suspect]
     Active Substance: ZOLEDRONIC ACID
     Indication: PROSTATE CANCER METASTATIC
     Dosage: MONTHLY
     Route: 042
     Dates: start: 20141001, end: 20150501

REACTIONS (2)
  - Osteonecrosis of jaw [Unknown]
  - Infection [Unknown]

NARRATIVE: CASE EVENT DATE: 20150831
